FAERS Safety Report 9496902 (Version 1)
Quarter: 2013Q3

REPORT INFORMATION
  Report Type: Spontaneous
  Country: US (occurrence: None)
  Receive Date: 20130903
  Receipt Date: 20130903
  Transmission Date: 20140515
  Serious: Yes (Disabling)
  Sender: FDA-Public Use
  Company Number: None

PATIENT
  Age: 21 Year
  Sex: Female
  Weight: 68.04 kg

DRUGS (2)
  1. DOXYCYCLINE [Suspect]
     Indication: ACNE
     Route: 048
     Dates: start: 20070801, end: 20130318
  2. DOXYCYCLINE [Suspect]
     Indication: ERYTHEMA
     Route: 048
     Dates: start: 20070801, end: 20130318

REACTIONS (3)
  - Abdominal pain upper [None]
  - Gastrointestinal pain [None]
  - Gastrointestinal pain [None]
